FAERS Safety Report 4749147-0 (Version None)
Quarter: 2005Q3

REPORT INFORMATION
  Report Type: 
  Country: None (occurrence: None)
  Receive Date: 20050817
  Receipt Date: 20050802
  Transmission Date: 20060218
  Serious: Yes (Hospitalization)
  Sender: FDA-Public Use
  Company Number: 2005FR-00214

PATIENT
  Age: 80 Year
  Sex: Female

DRUGS (11)
  1. ETODOLAC [Suspect]
     Dosage: 300 MG, BD, ORAL
     Route: 048
     Dates: end: 20050704
  2. FUROSEMIDE [Concomitant]
  3. GLICLAZIDE [Concomitant]
  4. DOXAZOSIN [Concomitant]
  5. AMITRIPTYLINE HCL [Concomitant]
  6. ASPIRIN [Concomitant]
  7. FERROUS [Concomitant]
  8. SULPHATE [Concomitant]
  9. HUMAN MIXTARD [Concomitant]
  10. BETNOVAST [Concomitant]
  11. EUMOVATE [Concomitant]

REACTIONS (1)
  - DERMATITIS EXFOLIATIVE [None]
